FAERS Safety Report 8093953 (Version 3)
Quarter: 2013Q1

REPORT INFORMATION
  Report Type: Spontaneous
  Country: US (occurrence: US)
  Receive Date: 20110817
  Receipt Date: 20130222
  Transmission Date: 20140127
  Serious: Yes (Other)
  Sender: FDA-Public Use
  Company Number: US-ROCHE-795891

PATIENT
  Age: 21 Year
  Sex: Female
  Weight: 68.1 kg

DRUGS (1)
  1. ACCUTANE [Suspect]
     Indication: ACNE
     Route: 065
     Dates: start: 19990125, end: 19990428

REACTIONS (7)
  - Colitis ulcerative [Unknown]
  - Inflammatory bowel disease [Unknown]
  - Depression [Not Recovered/Not Resolved]
  - Injury [Unknown]
  - Acne [Unknown]
  - Dry skin [Unknown]
  - Irritable bowel syndrome [Unknown]
